FAERS Safety Report 6630177-9 (Version None)
Quarter: 2010Q1

REPORT INFORMATION
  Report Type: 
  Country: None (occurrence: None)
  Receive Date: 20100311
  Receipt Date: 20100305
  Transmission Date: 20100710
  Serious: Yes (Other)
  Sender: FDA-Public Use
  Company Number: US-JNJFOC-20100210239

PATIENT
  Sex: Female
  Weight: 77.11 kg

DRUGS (2)
  1. TOPAMAX [Suspect]
     Indication: BIPOLAR DISORDER
     Dosage: 4 TABLETS OF 25 MG
     Route: 048
  2. THYROID TAB [Concomitant]
     Indication: THYROID DISORDER
     Route: 048

REACTIONS (2)
  - DRUG INTOLERANCE [None]
  - PANIC ATTACK [None]
